FAERS Safety Report 10388116 (Version 2)
Quarter: 2014Q4

REPORT INFORMATION
  Report Type: Spontaneous
  Country: US (occurrence: US)
  Receive Date: 20140815
  Receipt Date: 20141006
  Transmission Date: 20150528
  Serious: Yes (Life-Threatening, Other)
  Sender: FDA-Public Use
  Company Number: US-ASTRAZENECA-2014SE59937

PATIENT
  Age: 628 Month
  Sex: Female

DRUGS (2)
  1. ARIMIDEX [Suspect]
     Active Substance: ANASTROZOLE
     Indication: BREAST CANCER
     Route: 048
  2. ARIMIDEX [Suspect]
     Active Substance: ANASTROZOLE
     Indication: ADJUVANT THERAPY
     Route: 048

REACTIONS (4)
  - Overdose [Unknown]
  - Adverse event [Unknown]
  - Suicide attempt [Unknown]
  - Alcohol abuse [Unknown]

NARRATIVE: CASE EVENT DATE: 201408
